FAERS Safety Report 10050748 (Version 1)
Quarter: 2014Q2

REPORT INFORMATION
  Report Type: Spontaneous
  Country: US (occurrence: US)
  Receive Date: 20140401
  Receipt Date: 20140401
  Transmission Date: 20141212
  Serious: No
  Sender: FDA-Public Use
  Company Number: US-ASTRAZENECA-2013SE76254

PATIENT
  Age: 79 Year
  Sex: Male
  Weight: 82.1 kg

DRUGS (6)
  1. NEXIUM [Suspect]
     Indication: GASTROOESOPHAGEAL REFLUX DISEASE
     Route: 048
     Dates: start: 2008
  2. NEXIUM [Suspect]
     Indication: GASTROOESOPHAGEAL REFLUX DISEASE
     Route: 048
  3. LIPITOR [Concomitant]
     Indication: BLOOD CHOLESTEROL ABNORMAL
     Route: 048
     Dates: start: 2000
  4. SYNTHROID [Concomitant]
     Indication: THYROID DISORDER
     Dosage: DAILY
     Route: 048
     Dates: start: 2000
  5. TUMS [Concomitant]
     Indication: DYSPEPSIA
     Route: 048
  6. ZANTAC [Concomitant]
     Indication: DYSPEPSIA
     Route: 048

REACTIONS (2)
  - Gastrooesophageal reflux disease [Unknown]
  - Intentional product misuse [Unknown]
